FAERS Safety Report 7349304-3 (Version None)
Quarter: 2011Q1

REPORT INFORMATION
  Report Type: 
  Country: None (occurrence: None)
  Receive Date: 20110314
  Receipt Date: 20110214
  Transmission Date: 20110831
  Serious: No
  Sender: FDA-Public Use
  Company Number: US-B.I. PHARMACEUTICALS,INC./RIDGEFIELD-2011-BP-00183BP

PATIENT
  Sex: Female

DRUGS (11)
  1. LOSARTAN [Concomitant]
     Indication: HYPERTENSION
     Dosage: 25 MG
  2. WARFARIN [Concomitant]
     Dosage: 6 MG
  3. PRADAXA [Suspect]
     Indication: ATRIAL FIBRILLATION
  4. PRADAXA [Suspect]
     Indication: DRUG THERAPY CHANGED
  5. ALENDRONATE [Concomitant]
     Indication: OSTEOPOROSIS
  6. PRADAXA [Suspect]
     Indication: ANTICOAGULANT THERAPY
     Dosage: 300 MG
     Route: 048
     Dates: start: 20101213, end: 20101222
  7. NAMENDA [Concomitant]
     Indication: MEMORY IMPAIRMENT
     Dosage: 20 MG
  8. SYNTHROID [Concomitant]
     Dosage: 68.5 MCG
  9. AMIODARONE [Concomitant]
     Indication: ATRIAL FIBRILLATION
     Dosage: 400 MG
  10. EXELON [Concomitant]
     Indication: MEMORY IMPAIRMENT
     Dosage: 4.6 MEQ
  11. CALCIUM [Concomitant]
     Indication: PROPHYLAXIS

REACTIONS (3)
  - LUNG INFILTRATION [None]
  - OESOPHAGEAL INJURY [None]
  - CHEST PAIN [None]
